FAERS Safety Report 9226898 (Version 1)
Quarter: 2013Q2

REPORT INFORMATION
  Report Type: Spontaneous
  Country: US (occurrence: US)
  Receive Date: 20130412
  Receipt Date: 20130412
  Transmission Date: 20140414
  Serious: Yes (Other)
  Sender: FDA-Public Use
  Company Number: US-JNJFOC-20130401613

PATIENT
  Age: 66 Year
  Sex: Female
  Weight: 60.78 kg

DRUGS (11)
  1. TOPAMAX [Suspect]
     Indication: NEUROPATHY PERIPHERAL
     Route: 048
  2. TOPAMAX [Suspect]
     Indication: NEUROPATHY PERIPHERAL
     Route: 048
     Dates: start: 20130308
  3. TOPAMAX [Suspect]
     Indication: PRODUCT USED FOR UNKNOWN INDICATION
     Route: 048
     Dates: start: 20130308
  4. TOPAMAX [Suspect]
     Indication: PRODUCT USED FOR UNKNOWN INDICATION
     Route: 048
  5. NEURONTIN [Suspect]
     Indication: NEUROPATHY PERIPHERAL
     Route: 048
     Dates: start: 201302
  6. NEURONTIN [Suspect]
     Indication: NEUROPATHY PERIPHERAL
     Route: 048
     Dates: start: 2013, end: 2013
  7. NEURONTIN [Suspect]
     Indication: NEUROPATHY PERIPHERAL
     Route: 048
     Dates: start: 201210
  8. NEURONTIN [Suspect]
     Indication: NEURALGIA
     Route: 048
     Dates: start: 2013, end: 2013
  9. NEURONTIN [Suspect]
     Indication: NEURALGIA
     Route: 048
     Dates: start: 201302
  10. NEURONTIN [Suspect]
     Indication: NEURALGIA
     Route: 048
     Dates: start: 201210
  11. LYRICA [Suspect]
     Indication: CERVICAL SPINAL STENOSIS
     Route: 065

REACTIONS (11)
  - Intervertebral disc disorder [Unknown]
  - Electromyogram abnormal [Unknown]
  - Spinal pain [Unknown]
  - Fibromyalgia [Unknown]
  - Off label use [Unknown]
  - Rash [Unknown]
  - Pruritus [Unknown]
  - Hypoaesthesia [Unknown]
  - Paraesthesia [Unknown]
  - White blood cell count increased [Unknown]
  - Blood glucose increased [Unknown]
